FAERS Safety Report 23573896 (Version 1)
Quarter: 2024Q1

REPORT INFORMATION
  Report Type: Report from Study
  Country: IT (occurrence: IT)
  Receive Date: 20240228
  Receipt Date: 20240228
  Transmission Date: 20240409
  Serious: Yes (Hospitalization)
  Sender: FDA-Public Use
  Company Number: IT-ORPHANEU-2024001336

PATIENT

DRUGS (4)
  1. CARBAGLU [Suspect]
     Active Substance: CARGLUMIC ACID
     Indication: Propionic acidaemia
     Dosage: 50 MG/KG/DAY, BID
     Dates: start: 20220215, end: 20230112
  2. CARNITINE [Concomitant]
     Active Substance: CARNITINE
     Indication: Propionic acidaemia
     Dosage: 6 GRAM/DAY
     Route: 048
     Dates: start: 20120706
  3. BIOTIN [Concomitant]
     Active Substance: BIOTIN
     Indication: Propionic acidaemia
     Dosage: 10 MG/DAY
     Route: 048
     Dates: start: 20120706
  4. SODIUM BICARBONATE [Concomitant]
     Active Substance: SODIUM BICARBONATE
     Indication: Propionic acidaemia
     Dosage: 12 MEQ/DAY
     Route: 048
     Dates: start: 20120706

REACTIONS (1)
  - Metabolic disorder [Recovered/Resolved]

NARRATIVE: CASE EVENT DATE: 20230113
